FAERS Safety Report 5677102-5 (Version None)
Quarter: 2008Q1

REPORT INFORMATION
  Report Type: 
  Country: None (occurrence: None)
  Receive Date: 20080324
  Receipt Date: 20080311
  Transmission Date: 20080703
  Serious: Yes (Other)
  Sender: FDA-Public Use
  Company Number: US-AMGEN-QUU269326

PATIENT
  Sex: Male

DRUGS (5)
  1. ENBREL [Suspect]
     Indication: DRUG USE FOR UNKNOWN INDICATION
     Route: 058
  2. ULTRAM [Concomitant]
  3. PREDNISONE TAB [Concomitant]
  4. FLEXERIL [Concomitant]
  5. METHOTREXATE [Concomitant]

REACTIONS (1)
  - THROMBOSIS [None]
